FAERS Safety Report 17876285 (Version 1)
Quarter: 2020Q2

REPORT INFORMATION
  Report Type: Spontaneous
  Country: GB (occurrence: GB)
  Receive Date: 20200609
  Receipt Date: 20200609
  Transmission Date: 20200714
  Serious: Yes (Other)
  Sender: FDA-Public Use
  Company Number: GB-MYLANLABS-2020M1054777

PATIENT
  Age: 32 Year
  Sex: Female

DRUGS (1)
  1. EPINEPHRINE. [Suspect]
     Active Substance: EPINEPHRINE
     Indication: PRODUCT USED FOR UNKNOWN INDICATION
     Dosage: 1:1000. DILUTED INTO 10ML SALINE AND 6ML GIVEN
     Route: 042
     Dates: start: 20200130, end: 20200130

REACTIONS (5)
  - Headache [Unknown]
  - Incorrect route of product administration [Unknown]
  - Pallor [Unknown]
  - Unresponsive to stimuli [Unknown]
  - Tachycardia [Unknown]

NARRATIVE: CASE EVENT DATE: 20200130
